FAERS Safety Report 6644746-3 (Version None)
Quarter: 2010Q1

REPORT INFORMATION
  Report Type: 
  Country: None (occurrence: None)
  Receive Date: 20100318
  Receipt Date: 20100318
  Transmission Date: 20100710
  Serious: Yes (Hospitalization)
  Sender: FDA-Public Use
  Company Number: None

PATIENT
  Age: 83 Year
  Sex: Male
  Weight: 64.7 kg

DRUGS (2)
  1. WARFARIN SODIUM [Suspect]
     Indication: INTRACARDIAC THROMBUS
     Dosage: 6MG DAILY EXCEPT ON TUESDAY AND THURSDAY 9MG  MG EVERY DAY PO
     Route: 048
     Dates: start: 19950526, end: 20091008
  2. WARFARIN SODIUM [Suspect]
     Indication: LEFT VENTRICULAR DYSFUNCTION
     Dosage: 6MG DAILY EXCEPT ON TUESDAY AND THURSDAY 9MG  MG EVERY DAY PO
     Route: 048
     Dates: start: 19950526, end: 20091008

REACTIONS (13)
  - ABDOMINAL DISTENSION [None]
  - ABDOMINAL PAIN [None]
  - ACUTE PRERENAL FAILURE [None]
  - ANAEMIA [None]
  - CONSTIPATION [None]
  - DECREASED APPETITE [None]
  - DIARRHOEA [None]
  - HAEMORRHAGE [None]
  - HYPOPHAGIA [None]
  - HYPOVOLAEMIA [None]
  - INTERNATIONAL NORMALISED RATIO INCREASED [None]
  - RENAL FAILURE ACUTE [None]
  - RETROPERITONEAL HAEMATOMA [None]
